FAERS Safety Report 7807680-9 (Version None)
Quarter: 2011Q4

REPORT INFORMATION
  Report Type: 
  Country: None (occurrence: None)
  Receive Date: 20111011
  Receipt Date: 20110907
  Transmission Date: 20120403
  Serious: No
  Sender: FDA-Public Use
  Company Number: US-BAYER-2011-084659

PATIENT
  Sex: Female

DRUGS (1)
  1. CIPROFLOXACIN [Suspect]

REACTIONS (3)
  - RASH [None]
  - URTICARIA [None]
  - RASH MACULAR [None]
